FAERS Safety Report 9849518 (Version 1)
Quarter: 2014Q1

REPORT INFORMATION
  Report Type: Spontaneous
  Country: US (occurrence: None)
  Receive Date: 20140127
  Receipt Date: 20140127
  Transmission Date: 20141002
  Serious: Yes (Other)
  Sender: FDA-Public Use
  Company Number: None

PATIENT
  Age: 28 Year
  Sex: Female
  Weight: 65.77 kg

DRUGS (1)
  1. WELLBUTRIN [Suspect]
     Indication: DEPRESSION
     Route: 048

REACTIONS (9)
  - Agitation [None]
  - Diarrhoea [None]
  - Nausea [None]
  - Anxiety [None]
  - Balance disorder [None]
  - Hallucination, auditory [None]
  - Confusional state [None]
  - Vertigo [None]
  - Nervousness [None]
